FAERS Safety Report 8540359-7 (Version None)
Quarter: 2012Q3

REPORT INFORMATION
  Report Type: 
  Country: None (occurrence: None)
  Receive Date: 20120726
  Receipt Date: 20110825
  Transmission Date: 20120928
  Serious: No
  Sender: FDA-Public Use
  Company Number: US-ASTRAZENECA-2010SE27644

PATIENT
  Age: 73 Year
  Sex: Female

DRUGS (4)
  1. HALDOL [Concomitant]
  2. SEROQUEL [Suspect]
     Indication: BIPOLAR DISORDER
     Route: 048
  3. CLONOPIN [Concomitant]
  4. SEROQUEL [Suspect]
     Dosage: 200 MG+150 MG ONCE
     Route: 048
     Dates: start: 20100611, end: 20100612

REACTIONS (5)
  - FEELING ABNORMAL [None]
  - FATIGUE [None]
  - INSOMNIA [None]
  - WRONG TECHNIQUE IN DRUG USAGE PROCESS [None]
  - CHEST PAIN [None]
